FAERS Safety Report 17963147 (Version 1)
Quarter: 2020Q2

REPORT INFORMATION
  Report Type: Spontaneous
  Country: CN (occurrence: CN)
  Receive Date: 20200630
  Receipt Date: 20200630
  Transmission Date: 20200714
  Serious: Yes (Hospitalization)
  Sender: FDA-Public Use
  Company Number: CN-PFIZER INC-2020248755

PATIENT
  Age: 13 Year
  Sex: Male
  Weight: 50 kg

DRUGS (2)
  1. GLUCOSE INJECTION [Suspect]
     Active Substance: DEXTROSE
     Indication: VEHICLE SOLUTION USE
     Dosage: 250 ML, 2X/DAY (12X/DAY, EVERY 12 HOURS)
     Route: 042
     Dates: start: 20200610, end: 20200612
  2. CYTOSAR [Suspect]
     Active Substance: CYTARABINE
     Indication: ACUTE MYELOID LEUKAEMIA
     Dosage: 4.38 G, 2X/DAY (12X/DAY, EVERY 12 HOURS)
     Route: 042
     Dates: start: 20200610, end: 20200612

REACTIONS (3)
  - Decreased appetite [Recovered/Resolved]
  - Abdominal discomfort [Recovered/Resolved]
  - Vomiting [Recovered/Resolved]

NARRATIVE: CASE EVENT DATE: 20200611
